FAERS Safety Report 8570639-0 (Version None)
Quarter: 2012Q3

REPORT INFORMATION
  Report Type: 
  Country: None (occurrence: None)
  Receive Date: 20120804
  Receipt Date: 20120731
  Transmission Date: 20120928
  Serious: Yes (Hospitalization)
  Sender: FDA-Public Use
  Company Number: GR-ABBOTT-11P-066-0840425-00

PATIENT
  Sex: Male
  Weight: 68 kg

DRUGS (11)
  1. EZETIMIBE [Concomitant]
     Indication: CORONARY ARTERY DISEASE
     Dosage: DAILY, (10+40)MG
     Route: 048
     Dates: start: 20080219
  2. TAMSULOSIN HCL [Concomitant]
     Indication: BENIGN PROSTATIC HYPERPLASIA
     Route: 048
     Dates: start: 20080219
  3. MANYPER [Concomitant]
     Indication: HYPERTENSION
     Route: 048
     Dates: start: 20100204
  4. HYTRIN [Concomitant]
     Indication: HYPERTENSION
     Route: 048
     Dates: start: 20100204
  5. ALLOPURINOL [Concomitant]
     Indication: HYPERURICAEMIA
     Route: 048
     Dates: start: 20090816
  6. EPREX [Concomitant]
     Indication: NEPHROGENIC ANAEMIA
     Route: 058
     Dates: start: 20091210
  7. ZEMPLAR [Suspect]
     Indication: RENAL FAILURE CHRONIC
     Route: 048
     Dates: start: 20100204
  8. IMDUR [Concomitant]
     Indication: CORONARY ARTERY DISEASE
     Dosage: 1/2 TABLET ONCE DAILY
     Route: 048
     Dates: start: 20091029
  9. CATAPRES [Concomitant]
     Indication: HYPERTENSION
     Route: 048
     Dates: start: 20091029
  10. PLAVIX [Concomitant]
     Indication: CORONARY ARTERY DISEASE
     Route: 048
     Dates: start: 20080219
  11. INDAPAMIDE [Concomitant]
     Indication: HYPERTENSION
     Route: 048
     Dates: start: 20080219

REACTIONS (2)
  - CORONARY ARTERY OCCLUSION [None]
  - ANGINA PECTORIS [None]
